FAERS Safety Report 7621610-4 (Version None)
Quarter: 2011Q3

REPORT INFORMATION
  Report Type: 
  Country: None (occurrence: None)
  Receive Date: 20110719
  Receipt Date: 20100405
  Transmission Date: 20111222
  Serious: Yes (Other)
  Sender: FDA-Public Use
  Company Number: US-BAYER-200829333NA

PATIENT
  Sex: Male
  Weight: 81.818 kg

DRUGS (52)
  1. OMNISCAN [Suspect]
     Indication: ANGIOGRAM
     Dosage: UNK
     Dates: start: 20040504, end: 20040504
  2. GADOLINIUM IN UNSPECIFIED DRUG [Suspect]
     Dosage: UNK
     Dates: start: 20031116
  3. CELLCEPT [Concomitant]
     Dosage: DAILY DOSE 500 MG
  4. JANUVIA [Concomitant]
     Dosage: 100 MG, QD
  5. INDERAL [Concomitant]
  6. IRON SUPPLEMENT [Concomitant]
  7. MAGNEVIST [Suspect]
     Indication: ANGIOGRAM
     Dosage: UNK
     Dates: start: 20050304, end: 20050304
  8. GADOLINIUM IN UNSPECIFIED DRUG [Suspect]
     Indication: NUCLEAR MAGNETIC RESONANCE IMAGING
     Dates: start: 20050304, end: 20050304
  9. GADOLINIUM IN UNSPECIFIED DRUG [Suspect]
     Dosage: UNK
     Dates: start: 20050304
  10. GADOLINIUM IN UNSPECIFIED DRUG [Suspect]
     Dosage: UNK
     Dates: start: 20050315
  11. ALLOPURINOL [Concomitant]
  12. DIOVAN [Concomitant]
  13. DILTIAZEM [Concomitant]
  14. OMNISCAN [Suspect]
     Indication: NUCLEAR MAGNETIC RESONANCE IMAGING
     Dosage: 20 ML, UNK
     Dates: start: 20030402, end: 20110402
  15. GADOLINIUM IN UNSPECIFIED DRUG [Suspect]
     Dosage: UNK
     Dates: start: 20001026
  16. LIPITOR [Concomitant]
     Dosage: 40 MG, QD
  17. AVAPRO [Concomitant]
  18. VISIPAQUE [Suspect]
     Indication: ANGIOPLASTY
     Dosage: 100 ML, UNK
     Dates: start: 20050315
  19. GADOLINIUM IN UNSPECIFIED DRUG [Suspect]
     Dosage: UNK
     Dates: start: 20030402
  20. IMDUR [Concomitant]
  21. LOPRESSOR [Concomitant]
  22. MULTIHANCE [Suspect]
     Indication: NUCLEAR MAGNETIC RESONANCE IMAGING
  23. NEURONTIN [Concomitant]
  24. PREDNISONE [Concomitant]
     Dosage: DAILY DOSE 5 MG
  25. COREG [Concomitant]
     Dosage: 3.125 MG, BID
  26. LASIX [Concomitant]
     Dosage: 40 MG, BID
  27. FLOMAX [Concomitant]
  28. DEMADEX [Concomitant]
  29. STARLIX [Concomitant]
  30. METOPROLOL TARTRATE [Concomitant]
  31. OPTIMARK [Suspect]
     Indication: NUCLEAR MAGNETIC RESONANCE IMAGING
  32. PROHANCE [Suspect]
     Indication: NUCLEAR MAGNETIC RESONANCE IMAGING
     Dosage: 19 ML, UNK
     Dates: start: 20031116
  33. GADOLINIUM IN UNSPECIFIED DRUG [Suspect]
     Dosage: UNK
     Dates: start: 20040504
  34. ASPIRIN [Concomitant]
  35. NEPHROVITE [VIT C,VIT H,B5,B12,B9,B3,B6,B2,B1 HCL] [Concomitant]
  36. COZAAR [Concomitant]
     Dosage: 50 MG, QD
  37. PIOGLITAZONE [Concomitant]
     Dosage: 45 MG, QD
  38. GABAPENTIN [Concomitant]
     Dosage: 300 MG, QD
  39. MAGNEVIST [Suspect]
     Indication: ANGIOPLASTY
     Dosage: 80 ML, UNK
     Dates: start: 20050315
  40. GADOLINIUM IN UNSPECIFIED DRUG [Suspect]
     Dosage: UNK
     Dates: start: 20010904
  41. GADOLINIUM IN UNSPECIFIED DRUG [Suspect]
     Dosage: UNK
     Dates: start: 20031010
  42. RENAGEL [Concomitant]
  43. ASPIRIN [Concomitant]
     Dosage: 81 MG, QD
  44. RANEXA [Concomitant]
     Dosage: 500 MG, QD
  45. AMBIEN [Concomitant]
  46. MAGNEVIST [Suspect]
     Indication: NUCLEAR MAGNETIC RESONANCE IMAGING
     Dosage: UNK
     Dates: start: 20040504, end: 20040504
  47. PROHANCE [Suspect]
  48. GADOLINIUM IN UNSPECIFIED DRUG [Suspect]
     Dosage: UNK
     Dates: start: 19901213
  49. PLAVIX [Concomitant]
     Dosage: DAILY DOSE 75 MG
  50. ARANESP [Concomitant]
  51. PROGRAF [Concomitant]
     Dosage: 0.5 MG, BID
  52. NOVOLOG MIX 70/30 [Concomitant]

REACTIONS (10)
  - BONE PAIN [None]
  - ANXIETY [None]
  - MUSCULAR WEAKNESS [None]
  - EMOTIONAL DISTRESS [None]
  - NEPHROGENIC SYSTEMIC FIBROSIS [None]
  - RENAL FAILURE CHRONIC [None]
  - GENERAL PHYSICAL HEALTH DETERIORATION [None]
  - INJURY [None]
  - PAIN [None]
  - MOBILITY DECREASED [None]
